FAERS Safety Report 12352570 (Version 3)
Quarter: 2016Q3

REPORT INFORMATION
  Report Type: Spontaneous
  Country: US (occurrence: US)
  Receive Date: 20160510
  Receipt Date: 20160817
  Transmission Date: 20161109
  Serious: Yes (Hospitalization)
  Sender: FDA-Public Use
  Company Number: US-PFIZER INC-2016220857

PATIENT
  Age: 70 Year
  Sex: Female

DRUGS (2)
  1. GABAPENTIN. [Suspect]
     Active Substance: GABAPENTIN
     Indication: TRIGEMINAL NEURALGIA
     Dosage: 20 MG, 2X/DAY
     Route: 048
     Dates: start: 2014, end: 201511
  2. TEGRETOL [Concomitant]
     Active Substance: CARBAMAZEPINE
     Indication: TRIGEMINAL NEURALGIA
     Dosage: 5 TABLETS, DAILY
     Route: 048

REACTIONS (2)
  - Drug ineffective for unapproved indication [Recovered/Resolved]
  - Weight loss poor [Recovered/Resolved]

NARRATIVE: CASE EVENT DATE: 2014
